FAERS Safety Report 7520494-2 (Version None)
Quarter: 2011Q2

REPORT INFORMATION
  Report Type: 
  Country: None (occurrence: None)
  Receive Date: 20110602
  Receipt Date: 20110519
  Transmission Date: 20111010
  Serious: Yes (Other)
  Sender: FDA-Public Use
  Company Number: CA-ELI_LILLY_AND_COMPANY-CA201105006035

PATIENT
  Sex: Male

DRUGS (4)
  1. PROZAC [Suspect]
     Dosage: UNK, UNKNOWN
  2. CLOZARIL [Concomitant]
     Indication: SCHIZOPHRENIA
     Dosage: 250 MG, QD
     Route: 048
     Dates: start: 19950101
  3. VALPROIC ACID [Concomitant]
  4. CLOZARIL [Concomitant]
     Dosage: UNK, UNKNOWN

REACTIONS (2)
  - LEUKOPENIA [None]
  - DRUG INTERACTION [None]
